FAERS Safety Report 25775129 (Version 1)
Quarter: 2025Q3

REPORT INFORMATION
  Report Type: Spontaneous
  Country: US (occurrence: US)
  Receive Date: 20250909
  Receipt Date: 20250909
  Transmission Date: 20251020
  Serious: No
  Sender: NEUROCRINE BIOSCIENCES
  Company Number: US-NEUROCRINE BIOSCIENCES INC.-2025NBI11381

PATIENT
  Sex: Male

DRUGS (2)
  1. CRENESSITY [Suspect]
     Active Substance: CRINECERFONT
     Indication: Adrenogenital syndrome
     Route: 065
  2. HYDROCORTISONE [Concomitant]
     Active Substance: HYDROCORTISONE

REACTIONS (5)
  - Sperm concentration decreased [Unknown]
  - Spermatozoa progressive motility decreased [Unknown]
  - Blood testosterone decreased [Unknown]
  - Blood androstenedione increased [Unknown]
  - 17-hydroxyprogesterone increased [Unknown]
